FAERS Safety Report 4560578-4 (Version None)
Quarter: 2005Q1

REPORT INFORMATION
  Report Type: 
  Country: None (occurrence: None)
  Receive Date: 20050125
  Receipt Date: 20041126
  Transmission Date: 20050727
  Serious: Yes (Hospitalization)
  Sender: FDA-Public Use
  Company Number: PHBS2004JP16023

PATIENT
  Age: 66 Year
  Sex: Female

DRUGS (4)
  1. GLAKAY [Concomitant]
     Dosage: 45 MG, UNK
     Route: 048
  2. URSO 250 [Concomitant]
     Dosage: 600 MG, UNK
     Route: 048
  3. CABAGIN-U [Concomitant]
     Dosage: 6 DF, UNK
     Route: 048
  4. DIOVAN [Suspect]
     Indication: HYPERTENSION
     Dosage: 40 MG, QD

REACTIONS (4)
  - ASPARTATE AMINOTRANSFERASE INCREASED [None]
  - DISEASE RECURRENCE [None]
  - GAMMA-GLUTAMYLTRANSFERASE INCREASED [None]
  - HEPATITIS C [None]
